FAERS Safety Report 20445696 (Version 1)
Quarter: 2022Q1

REPORT INFORMATION
  Report Type: Spontaneous
  Country: US (occurrence: US)
  Receive Date: 20220208
  Receipt Date: 20220208
  Transmission Date: 20220423
  Serious: No
  Sender: FDA-Public Use
  Company Number: US-GALDERMA-US2021015853

PATIENT

DRUGS (5)
  1. SOOLANTRA [Suspect]
     Active Substance: IVERMECTIN
     Indication: Rosacea
     Dosage: 1 DOSAGE FORM, UNKNOWN
     Route: 061
     Dates: start: 20210812
  2. CETAPHIL REDNESS RELIEVING DAILY FACIAL MOISTURIZER WITH SUNCREEN SPF [Suspect]
     Active Substance: TITANIUM DIOXIDE\ZINC OXIDE
     Indication: Erythema
     Dosage: 1 DOSAGE FORM, USED ONCE
     Route: 061
     Dates: start: 20210824, end: 20210824
  3. COSMETICS [Suspect]
     Active Substance: COSMETICS
     Indication: Product used for unknown indication
     Dosage: 1 DOSAGE FORM, USED TWICE
     Route: 061
     Dates: start: 20210824, end: 20210825
  4. Neutrogena Hydrating face wash [Concomitant]
     Indication: Product used for unknown indication
     Route: 061
  5. lotion with goat milk [Concomitant]
     Indication: Product used for unknown indication
     Route: 061

REACTIONS (5)
  - Swelling face [Not Recovered/Not Resolved]
  - Erythema [Not Recovered/Not Resolved]
  - Eye irritation [Not Recovered/Not Resolved]
  - Pruritus [Not Recovered/Not Resolved]
  - Skin burning sensation [Not Recovered/Not Resolved]

NARRATIVE: CASE EVENT DATE: 20210825
